FAERS Safety Report 8583692-5 (Version None)
Quarter: 2012Q3

REPORT INFORMATION
  Report Type: 
  Country: None (occurrence: None)
  Receive Date: 20120809
  Receipt Date: 20120712
  Transmission Date: 20120928
  Serious: Yes (Hospitalization, Other)
  Sender: FDA-Public Use
  Company Number: US-009507513-2012SP011833

PATIENT

DRUGS (2)
  1. NUVARING [Suspect]
     Indication: CONTRACEPTION
     Dosage: UNK
     Dates: start: 20090801, end: 20100301
  2. NUVARING [Suspect]
     Indication: MENSTRUATION IRREGULAR

REACTIONS (15)
  - MUSCULAR WEAKNESS [None]
  - MUSCLE SPASMS [None]
  - SCIATICA [None]
  - INTRACRANIAL VENOUS SINUS THROMBOSIS [None]
  - PULMONARY EMBOLISM [None]
  - PYREXIA [None]
  - ADVERSE DRUG REACTION [None]
  - DEEP VEIN THROMBOSIS [None]
  - INFECTION [None]
  - HYPERTENSION [None]
  - BACK PAIN [None]
  - DEPRESSION [None]
  - MIGRAINE [None]
  - LUMBAR RADICULOPATHY [None]
  - RASH [None]
